FAERS Safety Report 6918661-1 (Version None)
Quarter: 2010Q3

REPORT INFORMATION
  Report Type: 
  Country: None (occurrence: None)
  Receive Date: 20100811
  Receipt Date: 20100730
  Transmission Date: 20110219
  Serious: Yes (Other)
  Sender: FDA-Public Use
  Company Number: US-PFIZER INC-2010080715

PATIENT
  Sex: Male

DRUGS (18)
  1. FELDENE [Suspect]
     Dosage: UNK
  2. GABAPENTIN [Interacting]
     Dosage: UNK
  3. ATENOLOL [Interacting]
     Dosage: UNK
  4. FOLIC ACID [Interacting]
     Dosage: UNK
  5. DIGOXIN [Interacting]
     Dosage: UNK
  6. ZYRTEC [Interacting]
     Dosage: UNK
     Route: 048
  7. TRAMADOL [Interacting]
     Dosage: UNK
  8. NORVIR [Interacting]
     Dosage: UNK
     Route: 048
  9. FERROUS SULFATE [Interacting]
     Dosage: UNK
  10. DIPHENHYDRAMINE [Interacting]
     Dosage: UNK
  11. LOPERAMIDE [Interacting]
     Dosage: UNK
  12. ATROVENT [Interacting]
     Dosage: UNK
  13. COZAAR [Interacting]
     Dosage: UNK
     Route: 048
  14. LEXAPRO [Interacting]
     Dosage: UNK
     Route: 048
  15. EPOGEN [Interacting]
     Dosage: UNK
  16. ABILIFY [Interacting]
     Dosage: UNK
  17. CARVEDILOL [Interacting]
     Dosage: UNK
  18. SEROQUEL [Interacting]
     Dosage: UNK

REACTIONS (2)
  - DRUG INTERACTION [None]
  - RASH [None]
